FAERS Safety Report 16981042 (Version 2)
Quarter: 2020Q1

REPORT INFORMATION
  Report Type: Spontaneous
  Country: US (occurrence: US)
  Receive Date: 20191031
  Receipt Date: 20200122
  Transmission Date: 20200409
  Serious: No
  Sender: FDA-Public Use
  Company Number: US-GLAXOSMITHKLINE-US2019AMR192384

PATIENT
  Sex: Female

DRUGS (1)
  1. BENLYSTA [Suspect]
     Active Substance: BELIMUMAB
     Indication: SYSTEMIC LUPUS ERYTHEMATOSUS
     Dosage: 200 MG/ML, WE
     Route: 065

REACTIONS (6)
  - Oropharyngeal pain [Unknown]
  - Pain [Unknown]
  - Product dose omission [Unknown]
  - Alopecia [Unknown]
  - Nasopharyngitis [Unknown]
  - Dysphonia [Unknown]
